FAERS Safety Report 8165028-7 (Version None)
Quarter: 2012Q1

REPORT INFORMATION
  Report Type: 
  Country: None (occurrence: None)
  Receive Date: 20120227
  Receipt Date: 20120215
  Transmission Date: 20120608
  Serious: No
  Sender: FDA-Public Use
  Company Number: US-BIOGENIDEC-2012BI006156

PATIENT
  Age: 47 Year
  Sex: Female

DRUGS (2)
  1. AVONEX [Suspect]
     Indication: MULTIPLE SCLEROSIS
     Route: 030
     Dates: start: 19970201, end: 19980731
  2. AVONEX [Suspect]
     Route: 030
     Dates: start: 19980801

REACTIONS (3)
  - OROPHARYNGEAL PAIN [None]
  - GENERAL SYMPTOM [None]
  - COUGH [None]
